FAERS Safety Report 17678246 (Version 3)
Quarter: 2020Q3

REPORT INFORMATION
  Report Type: Spontaneous
  Country: PL (occurrence: PL)
  Receive Date: 20200417
  Receipt Date: 20200928
  Transmission Date: 20201102
  Serious: Yes (Hospitalization, Other)
  Sender: FDA-Public Use
  Company Number: PL-009507513-1711POL002242

PATIENT
  Age: 4 Year
  Sex: Female

DRUGS (1)
  1. ELOCOM [Suspect]
     Active Substance: MOMETASONE FUROATE
     Indication: DERMATITIS ATOPIC
     Dosage: UNK, 2?3 TIMES A WEEK (APPLIED ON ENTIRE SKIN DURING EXACERBATION)
     Route: 061

REACTIONS (1)
  - Cushing^s syndrome [Recovering/Resolving]
